FAERS Safety Report 13450293 (Version 1)
Quarter: 2017Q2

REPORT INFORMATION
  Report Type: Spontaneous
  Country: SE (occurrence: SE)
  Receive Date: 20170417
  Receipt Date: 20170417
  Transmission Date: 20170830
  Serious: Yes (Death, Other)
  Sender: FDA-Public Use
  Company Number: SE-BAXTER-2017BAX011711

PATIENT
  Sex: Male

DRUGS (4)
  1. EXTRANEAL [Suspect]
     Active Substance: CALCIUM CHLORIDE\ICODEXTRIN\MAGNESIUM CHLORIDE\SODIUM CHLORIDE\SODIUM LACTATE
     Indication: PERITONEAL DIALYSIS
     Route: 033
  2. PHYSIONEAL 40 GLUCOSE 13,6 MG/ML (1,36% W/V), PERITONEALDIALYSV?TSKA [Suspect]
     Active Substance: CALCIUM CHLORIDE\DEXTROSE\MAGNESIUM CHLORIDE\SODIUM CHLORIDE SOLUTION
     Indication: PERITONEAL DIALYSIS
     Route: 033
  3. PHYSIONEAL 40 GLUCOSE 38,6 MG/ML (3,86% W/V), PERITONEALDIALYSV?TSKA [Suspect]
     Active Substance: CALCIUM CHLORIDE\DEXTROSE\MAGNESIUM CHLORIDE\SODIUM CHLORIDE SOLUTION
     Indication: PERITONEAL DIALYSIS
     Route: 033
  4. PHYSIONEAL 40 GLUCOSE 22,7 MG/ML (2,27% W/V) CLEAR-FLEX, PERITONEALDIA [Suspect]
     Active Substance: CALCIUM CHLORIDE\DEXTROSE\MAGNESIUM CHLORIDE\SODIUM CHLORIDE SOLUTION
     Indication: PERITONEAL DIALYSIS
     Route: 033

REACTIONS (3)
  - Arteriosclerosis [Unknown]
  - Cerebrovascular accident [Fatal]
  - Diabetes mellitus [Unknown]
